FAERS Safety Report 14924164 (Version 4)
Quarter: 2019Q1

REPORT INFORMATION
  Report Type: Report from Study
  Country: US (occurrence: US)
  Receive Date: 20180522
  Receipt Date: 20190322
  Transmission Date: 20190417
  Serious: Yes (Other)
  Sender: FDA-Public Use
  Company Number: PHEH2018US018956

PATIENT
  Age: 8 Year
  Sex: Female

DRUGS (2)
  1. AFINITOR [Suspect]
     Active Substance: EVEROLIMUS
     Indication: ASTROCYTOMA, LOW GRADE
     Dosage: 2.5 MG, QD
     Route: 048
     Dates: start: 20180415
  2. AFINITOR [Suspect]
     Active Substance: EVEROLIMUS
     Dosage: 2.5 MG, QD
     Route: 048

REACTIONS (13)
  - Syncope [Unknown]
  - Fall [Unknown]
  - Nasopharyngitis [Unknown]
  - Viral infection [Recovered/Resolved]
  - Abdominal pain [Unknown]
  - Rhinorrhoea [Recovered/Resolved]
  - Vomiting [Unknown]
  - Nasal congestion [Recovered/Resolved]
  - Cough [Recovering/Resolving]
  - Malaise [Unknown]
  - Regurgitation [Unknown]
  - Pyrexia [Unknown]
  - Pallor [Unknown]

NARRATIVE: CASE EVENT DATE: 20180823
